FAERS Safety Report 4836503-5 (Version None)
Quarter: 2005Q4

REPORT INFORMATION
  Report Type: 
  Country: None (occurrence: None)
  Receive Date: 20051123
  Receipt Date: 20051111
  Transmission Date: 20060501
  Serious: Yes (Hospitalization, Disabling)
  Sender: FDA-Public Use
  Company Number: US-GLAXOSMITHKLINE-A0583075A

PATIENT
  Sex: Female

DRUGS (4)
  1. PAXIL [Suspect]
     Indication: DEPRESSION
     Dosage: 10MG UNKNOWN
     Route: 065
     Dates: start: 19980101
  2. PAXIL CR [Suspect]
     Indication: DEPRESSION
     Dosage: 50MG UNKNOWN
     Route: 048
  3. WELLBUTRIN [Suspect]
     Indication: DEPRESSION
     Route: 065
  4. ZOLOFT [Suspect]
     Indication: DEPRESSION
     Dosage: 50MG UNKNOWN
     Route: 065

REACTIONS (16)
  - ANOREXIA [None]
  - BEDRIDDEN [None]
  - BORDERLINE PERSONALITY DISORDER [None]
  - CRYING [None]
  - DEPRESSION [None]
  - DRUG INEFFECTIVE [None]
  - FEAR [None]
  - FEELING ABNORMAL [None]
  - FEELING OF DESPAIR [None]
  - MIGRAINE [None]
  - PANIC ATTACK [None]
  - PERFORMANCE STATUS DECREASED [None]
  - SOMNOLENCE [None]
  - SUICIDAL IDEATION [None]
  - SUICIDE ATTEMPT [None]
  - WEIGHT DECREASED [None]
